FAERS Safety Report 9531025 (Version 1)
Quarter: 2013Q2

REPORT INFORMATION
  Report Type: Spontaneous
  Country: US (occurrence: None)
  Receive Date: 20130418
  Receipt Date: 20130418
  Transmission Date: 20140414
  Serious: Yes (Life-Threatening, Hospitalization)
  Sender: FDA-Public Use
  Company Number: 1205USA02856

PATIENT
  Sex: Female
  Weight: 74.8 kg

DRUGS (1)
  1. SINGULAIR (MONTELUKAST SODIUM) TABLET [Suspect]
     Indication: SINUS DISORDER
     Route: 048
     Dates: start: 20110301

REACTIONS (4)
  - Pneumonia [None]
  - Cough [None]
  - Diarrhoea [None]
  - Influenza [None]
